FAERS Safety Report 5404357-4 (Version None)
Quarter: 2007Q3

REPORT INFORMATION
  Report Type: 
  Country: None (occurrence: None)
  Receive Date: 20070802
  Receipt Date: 20070724
  Transmission Date: 20080115
  Serious: Yes (Life-Threatening)
  Sender: FDA-Public Use
  Company Number: BE-PFIZER INC-2007034673

PATIENT
  Sex: Male
  Weight: 75 kg

DRUGS (6)
  1. CHAMPIX [Suspect]
     Indication: SMOKING CESSATION THERAPY
     Route: 048
     Dates: start: 20070320, end: 20070419
  2. AMLODIPINE [Concomitant]
     Route: 048
  3. ALDACTAZINE [Concomitant]
     Route: 048
  4. BETA BLOCKING AGENTS [Concomitant]
     Route: 048
  5. CARDIOASPIRINE [Concomitant]
     Route: 048
  6. BISOPROLOL FUMARATE [Concomitant]
     Route: 048
     Dates: start: 20060101

REACTIONS (13)
  - ABNORMAL BEHAVIOUR [None]
  - ABNORMAL DREAMS [None]
  - APATHY [None]
  - DIZZINESS [None]
  - FLATULENCE [None]
  - HEART RATE INCREASED [None]
  - HYPERHIDROSIS [None]
  - INSOMNIA [None]
  - RESTLESSNESS [None]
  - SOMNAMBULISM [None]
  - THROAT IRRITATION [None]
  - TONGUE COATED [None]
  - URINE OUTPUT INCREASED [None]
